FAERS Safety Report 8389191-8 (Version None)
Quarter: 2012Q2

REPORT INFORMATION
  Report Type: 
  Country: None (occurrence: None)
  Receive Date: 20120528
  Receipt Date: 20120524
  Transmission Date: 20120825
  Serious: Yes (Death, Hospitalization, Other)
  Sender: FDA-Public Use
  Company Number: PHEH2007US11162

PATIENT
  Sex: Female
  Weight: 58.957 kg

DRUGS (32)
  1. FOSAMAX [Suspect]
     Dosage: 70 MG, UNK
     Dates: start: 20040101
  2. PROTONIX [Concomitant]
     Dosage: 40 MG, UNK
     Dates: start: 20040101
  3. BIAXIN [Concomitant]
     Dosage: 250 MG, UNK
     Dates: start: 20040101
  4. WARFARIN SODIUM [Concomitant]
     Dosage: 1 MG, UNK
     Dates: start: 20050101
  5. MORPHINE SULFATE [Concomitant]
     Dosage: 100 MG, UNK
     Dates: start: 20050101
  6. LASIX [Concomitant]
  7. ZOMETA [Suspect]
     Indication: OSTEOPOROSIS PROPHYLAXIS
     Dosage: 4 MG, QW3
     Dates: start: 20040310
  8. PROVIGIL [Concomitant]
     Dosage: 100 MG, UNK
     Dates: start: 20040101
  9. CLINDAMYCIN [Concomitant]
     Dosage: 300 MG, UNK
     Dates: start: 20050101
  10. HYDROMORPHONE HCL [Concomitant]
     Dosage: 4 MG, UNK
     Dates: start: 20060101
  11. CARBOPLATIN [Concomitant]
  12. PROCRIT                            /00909301/ [Concomitant]
  13. LIDODERM [Concomitant]
     Route: 062
  14. DEXAMETHASONE [Concomitant]
     Dosage: 4 MG, UNK
     Dates: start: 20040101
  15. LEVAQUIN [Concomitant]
     Dosage: 500 MG, UNK
     Dates: start: 20040101
  16. BEXTRA [Concomitant]
     Dosage: 20 MG, UNK
     Dates: start: 20040101
  17. OXYCONTIN [Concomitant]
  18. FASLODEX [Concomitant]
  19. DILAUDID [Concomitant]
  20. PREVACID [Concomitant]
     Dosage: 30 MG, UNK
     Dates: start: 20060101
  21. NEXIUM [Concomitant]
     Dosage: 40 MG, UNK
     Dates: start: 20070101
  22. TAXOTERE [Concomitant]
  23. POTASSIUM CHLORIDE [Concomitant]
  24. FEOSOL [Concomitant]
     Indication: MINERAL SUPPLEMENTATION
  25. MEGACE [Concomitant]
  26. ETHAMBUTOL HYDROCHLORIDE [Concomitant]
     Dosage: 400 MG, BID
  27. AREDIA [Suspect]
     Route: 042
  28. CELEBREX [Concomitant]
     Dosage: 100 MG, UNK
     Dates: start: 20040101
  29. FEMARA [Concomitant]
     Indication: BREAST CANCER
  30. NEURONTIN [Concomitant]
     Dosage: 300 MG, UNK
     Dates: start: 20040101
  31. MS CONTIN [Concomitant]
  32. METOPROLOL [Concomitant]
     Dosage: 25 MG, Q12H

REACTIONS (67)
  - EMOTIONAL DISTRESS [None]
  - DISABILITY [None]
  - BREAST CANCER STAGE IV [None]
  - THROMBOCYTOSIS [None]
  - PLEURAL EFFUSION [None]
  - CHRONIC OBSTRUCTIVE PULMONARY DISEASE [None]
  - SINUSITIS [None]
  - CONSTIPATION [None]
  - MYALGIA [None]
  - FALL [None]
  - FRACTURE [None]
  - CERVICAL SPINAL STENOSIS [None]
  - HAEMORRHOIDS [None]
  - NASAL SEPTUM DEVIATION [None]
  - LETHARGY [None]
  - OSTEOARTHRITIS [None]
  - LEUKOPENIA [None]
  - BACK PAIN [None]
  - ACUTE PRERENAL FAILURE [None]
  - PHYSICAL DISABILITY [None]
  - BONE DISORDER [None]
  - ANAEMIA OF MALIGNANT DISEASE [None]
  - BONE NEOPLASM [None]
  - OSTEONECROSIS OF JAW [None]
  - DECREASED INTEREST [None]
  - ORAL CAVITY FISTULA [None]
  - ORAL DISCHARGE [None]
  - IRON DEFICIENCY ANAEMIA [None]
  - ARTHRITIS [None]
  - DYSPNOEA [None]
  - HYPERKALAEMIA [None]
  - RENAL FAILURE [None]
  - THROMBOCYTOPENIA [None]
  - LIP AND/OR ORAL CAVITY CANCER [None]
  - DEEP VEIN THROMBOSIS [None]
  - INTERVERTEBRAL DISC PROTRUSION [None]
  - CERVICAL CORD COMPRESSION [None]
  - BONE PAIN [None]
  - MULTIPLE INJURIES [None]
  - DEHYDRATION [None]
  - MENTAL STATUS CHANGES [None]
  - GINGIVAL ULCERATION [None]
  - METASTASES TO BONE [None]
  - COMPRESSION FRACTURE [None]
  - HAEMORRHAGE [None]
  - CARDIOMEGALY [None]
  - HYPERTENSION [None]
  - MUSCULOSKELETAL PAIN [None]
  - ASTHENIA [None]
  - OEDEMA PERIPHERAL [None]
  - METASTASES TO LUNG [None]
  - SYNCOPE [None]
  - PULMONARY TUBERCULOSIS [None]
  - DEATH [None]
  - PAIN [None]
  - OEDEMA MUCOSAL [None]
  - METASTATIC PAIN [None]
  - INTERVERTEBRAL DISC DEGENERATION [None]
  - KYPHOSCOLIOSIS [None]
  - ADRENAL DISORDER [None]
  - RHINORRHOEA [None]
  - CARDIAC FAILURE CONGESTIVE [None]
  - LYMPHADENOPATHY [None]
  - DIVERTICULUM [None]
  - ABDOMINAL PAIN [None]
  - SEPSIS [None]
  - CONFUSIONAL STATE [None]
